FAERS Safety Report 22053275 (Version 2)
Quarter: 2023Q2

REPORT INFORMATION
  Report Type: Spontaneous
  Country: FR (occurrence: FR)
  Receive Date: 20230302
  Receipt Date: 20230415
  Transmission Date: 20230721
  Serious: Yes (Other)
  Sender: FDA-Public Use
  Company Number: FR-AFSSAPS-NY2023000284

PATIENT
  Age: 64 Year
  Sex: Female

DRUGS (19)
  1. IRINOTECAN [Suspect]
     Active Substance: IRINOTECAN
     Indication: Adenocarcinoma pancreas
     Dosage: 1 DOSAGE FORM, CYCLICAL
     Route: 042
     Dates: start: 20230127
  2. IRINOTECAN [Suspect]
     Active Substance: IRINOTECAN
     Dosage: 1 DOSAGE FORM, CYCLICAL
     Route: 065
     Dates: start: 20230210, end: 20230210
  3. OXALIPLATIN [Suspect]
     Active Substance: OXALIPLATIN
     Indication: Adenocarcinoma pancreas
     Dosage: 1 DOSAGE FORM, CYCLICAL
     Route: 042
     Dates: start: 20230127
  4. OXALIPLATIN [Suspect]
     Active Substance: OXALIPLATIN
     Dosage: 1 DOSAGE FORM, CYCLICAL
     Route: 065
     Dates: start: 20230210, end: 20230210
  5. MORPHINE SULFATE [Concomitant]
     Active Substance: MORPHINE SULFATE
     Indication: Pain
     Dosage: 1 DOSAGE FORM, ONCE A DAY
     Route: 048
  6. CANDESARTAN CILEXETIL [Concomitant]
     Active Substance: CANDESARTAN CILEXETIL
     Indication: Hypertension
     Dosage: 1 DOSAGE FORM, ONCE A DAY
     Route: 048
  7. POTASSIUM CHLORIDE [Concomitant]
     Active Substance: POTASSIUM CHLORIDE
     Indication: Mineral supplementation
     Dosage: 1 DOSAGE FORM, ONCE A DAY
     Route: 048
  8. EMEND [Concomitant]
     Active Substance: APREPITANT
     Indication: Prophylaxis of nausea and vomiting
     Dosage: 1 DOSAGE FORM, CYCLICAL
     Route: 048
     Dates: start: 20230127
  9. LEUCOVORIN [Concomitant]
     Active Substance: LEUCOVORIN
     Indication: Adenocarcinoma pancreas
     Dosage: 1 DOSAGE FORM, CYCLICAL
     Route: 042
     Dates: start: 20230127
  10. FLUOROURACIL [Concomitant]
     Active Substance: FLUOROURACIL
     Indication: Adenocarcinoma pancreas
     Dosage: 1 DOSAGE FORM, CYCLICAL
     Route: 042
     Dates: start: 20230127
  11. JANUMET XR [Concomitant]
     Active Substance: METFORMIN HYDROCHLORIDE\SITAGLIPTIN PHOSPHATE
     Indication: Diabetes mellitus
     Dosage: 1 DOSAGE FORM, ONCE A DAY
     Route: 048
  12. LOPERAMIDE [Concomitant]
     Active Substance: LOPERAMIDE
     Indication: Diarrhoea
     Dosage: 1 DOSAGE FORM, AS NECESSARY
     Route: 048
     Dates: start: 20230127
  13. LEVOTHYROXINE SODIUM [Concomitant]
     Active Substance: LEVOTHYROXINE SODIUM
     Indication: Hypothyroidism
     Dosage: 1 DOSAGE FORM, ONCE A DAY
     Route: 048
  14. PEGFILGRASTIM [Concomitant]
     Active Substance: PEGFILGRASTIM
     Indication: Chemotherapy side effect prophylaxis
     Dosage: 1 DOSAGE FORM, CYCLICAL
     Route: 048
     Dates: start: 20230127
  15. PRIMPERAN [Concomitant]
     Active Substance: METOCLOPRAMIDE HYDROCHLORIDE
     Indication: Prophylaxis of nausea and vomiting
     Dosage: 1 DOSAGE FORM, AS NECESSARY
     Route: 048
     Dates: start: 20230127
  16. ASPIRIN [Concomitant]
     Active Substance: ASPIRIN
     Indication: Cardiovascular event prophylaxis
     Dosage: 1 DOSAGE FORM, ONCE A DAY
     Route: 048
  17. SKENAN [Concomitant]
     Active Substance: MORPHINE SULFATE
     Indication: Pain
     Dosage: 2 DOSAGE FORM, ONCE A DAY
     Route: 048
  18. Solupred [Concomitant]
     Indication: Chemotherapy side effect prophylaxis
     Dosage: 1 DOSAGE FORM, CYCLICAL
     Route: 048
     Dates: start: 20230127
  19. ONDANSETRON [Concomitant]
     Active Substance: ONDANSETRON
     Indication: Prophylaxis of nausea and vomiting
     Dosage: 1 DOSAGE FORM, CYCLICAL
     Route: 048
     Dates: start: 20230127

REACTIONS (2)
  - Hypoaesthesia [Recovered/Resolved]
  - Gait disturbance [Recovered/Resolved]

NARRATIVE: CASE EVENT DATE: 20230210
